FAERS Safety Report 4830831-5 (Version None)
Quarter: 2005Q4

REPORT INFORMATION
  Report Type: 
  Country: None (occurrence: None)
  Receive Date: 20051117
  Receipt Date: 20050930
  Transmission Date: 20060501
  Serious: Yes (Death, Hospitalization, Other)
  Sender: FDA-Public Use
  Company Number: US-MERCK-0510USA01962

PATIENT
  Age: 82 Year
  Sex: Male
  Weight: 77 kg

DRUGS (21)
  1. VIOXX [Suspect]
     Indication: ARTHRITIS
     Route: 048
     Dates: start: 20000705, end: 20040604
  2. ALLEGRA [Concomitant]
     Route: 065
  3. ALLOPURINOL [Concomitant]
     Route: 065
  4. AMIODARONE [Concomitant]
     Route: 065
  5. COREG [Concomitant]
     Route: 065
  6. ENALAPRIL MALEATE [Concomitant]
     Route: 065
  7. FERROUS SULFATE [Concomitant]
     Route: 065
  8. FLOMAX (MORNIFLUMATE) [Concomitant]
     Route: 065
  9. FUROSEMIDE [Concomitant]
     Route: 065
  10. LISINOPRIL [Concomitant]
     Route: 065
  11. LOVASTATIN [Concomitant]
     Route: 065
  12. MAGNESIUM OXIDE [Concomitant]
     Route: 065
  13. METHYLPREDNISOLONE [Concomitant]
     Route: 065
  14. NITROQUICK [Concomitant]
     Route: 065
  15. PLAVIX [Concomitant]
     Route: 065
  16. POTASSIUM (UNSPECIFIED) [Concomitant]
     Route: 065
  17. PROTONIX [Concomitant]
     Route: 065
  18. SYNTHROID [Concomitant]
     Route: 065
  19. TORSEMIDE [Concomitant]
     Route: 065
  20. VALTREX [Concomitant]
     Route: 065
  21. PREDNISONE [Concomitant]
     Route: 065

REACTIONS (5)
  - CARDIAC DISORDER [None]
  - CARDIAC FAILURE CONGESTIVE [None]
  - DEATH [None]
  - MYOCARDIAL INFARCTION [None]
  - TRANSIENT ISCHAEMIC ATTACK [None]
